FAERS Safety Report 6554744-6 (Version None)
Quarter: 2010Q1

REPORT INFORMATION
  Report Type: 
  Country: None (occurrence: None)
  Receive Date: 20100127
  Receipt Date: 20100118
  Transmission Date: 20100710
  Serious: Yes (Other)
  Sender: FDA-Public Use
  Company Number: US-JNJCH-2010002267

PATIENT
  Age: 5 Month
  Sex: Female
  Weight: 7.3 kg

DRUGS (1)
  1. DESITIN DIAPER RASH [Suspect]
     Indication: DERMATITIS DIAPER
     Dosage: TEXT:^LESS THAN A DIME SIZE^ ONCE
     Route: 061
     Dates: start: 20100117, end: 20100117

REACTIONS (2)
  - APPLICATION SITE BLEEDING [None]
  - APPLICATION SITE VESICLES [None]
